FAERS Safety Report 14852363 (Version 1)
Quarter: 2018Q2

REPORT INFORMATION
  Report Type: Spontaneous
  Country: US (occurrence: US)
  Receive Date: 20180507
  Receipt Date: 20180507
  Transmission Date: 20180711
  Serious: No
  Sender: FDA-Public Use
  Company Number: US-PFIZER INC-2018182374

PATIENT
  Sex: Female

DRUGS (3)
  1. LYRICA [Suspect]
     Active Substance: PREGABALIN
     Indication: RESTLESS LEGS SYNDROME
     Dosage: UNK, THE OTHER DAY AS NEEDED
  2. LYRICA [Suspect]
     Active Substance: PREGABALIN
     Indication: FIBROMYALGIA
  3. RISPERDAL [Concomitant]
     Active Substance: RISPERIDONE
     Indication: RESTLESS LEGS SYNDROME
     Dosage: UNK, DAILY

REACTIONS (2)
  - Off label use [Unknown]
  - Muscle spasms [Unknown]
